FAERS Safety Report 8852284 (Version 5)
Quarter: 2013Q2

REPORT INFORMATION
  Report Type: Spontaneous
  Country: JP (occurrence: JP)
  Receive Date: 20121022
  Receipt Date: 20130429
  Transmission Date: 20140414
  Serious: Yes (Hospitalization, Other)
  Sender: FDA-Public Use
  Company Number: JP-ABBOTT-12P-087-0978654-00

PATIENT
  Age: 67 Year
  Sex: Female

DRUGS (11)
  1. HUMIRA [Suspect]
     Indication: RHEUMATOID ARTHRITIS
     Route: 058
     Dates: start: 20120822, end: 20120831
  2. HUMIRA [Suspect]
     Dates: start: 201104, end: 20120715
  3. ORAL ANTIPSYCHOTIC DRUGS [Suspect]
  4. ORAL ANTIPSYCHOTIC DRUGS [Suspect]
     Dosage: DOSES REDUCED
  5. INFLIXIMAB [Suspect]
     Indication: RHEUMATOID ARTHRITIS
     Dates: end: 201104
  6. QUETIAPINE FUMARATE [Concomitant]
     Indication: BIPOLAR I DISORDER
     Route: 048
  7. ARIPIPRAZOLE [Concomitant]
     Indication: BIPOLAR I DISORDER
     Dosage: 6 MG DAILY
     Route: 048
     Dates: end: 20120908
  8. SODIUM FERROUS CITRATE [Concomitant]
     Indication: BIPOLAR I DISORDER
     Route: 048
     Dates: end: 20120908
  9. LITHIUM CARBONATE [Concomitant]
     Indication: BIPOLAR I DISORDER
     Route: 048
  10. NITRAZEPAM [Concomitant]
     Indication: BIPOLAR I DISORDER
     Route: 048
     Dates: end: 20120908
  11. NITRAZEPAM [Concomitant]
     Indication: BIPOLAR I DISORDER
     Route: 048
     Dates: end: 20120908

REACTIONS (12)
  - Vasculitis [Recovered/Resolved]
  - Vasculitis necrotising [Unknown]
  - Pneumonia [Recovered/Resolved]
  - Pneumonia aspiration [Recovered/Resolved]
  - Prescribed overdose [Unknown]
  - Scab [Recovered/Resolved]
  - Rheumatoid arthritis [Unknown]
  - Skin disorder [Unknown]
  - Lung abscess [Unknown]
  - Alpha haemolytic streptococcal infection [Unknown]
  - Staphylococcal infection [Unknown]
  - Candida infection [Unknown]
